FAERS Safety Report 6444496-2 (Version None)
Quarter: 2009Q4

REPORT INFORMATION
  Report Type: 
  Country: None (occurrence: None)
  Receive Date: 20091118
  Receipt Date: 20091030
  Transmission Date: 20100525
  Serious: Yes (Other)
  Sender: FDA-Public Use
  Company Number: US-SANOFI-AVENTIS-2009SA000958

PATIENT
  Age: 50 Year
  Sex: Male

DRUGS (6)
  1. LANTUS [Suspect]
     Indication: TYPE 2 DIABETES MELLITUS
     Dosage: DOSE:100 UNIT(S)
     Route: 058
     Dates: start: 20050101
  2. LANTUS [Suspect]
     Dosage: DOSE:40 UNIT(S)
     Route: 058
     Dates: start: 20090401
  3. LANTUS [Suspect]
     Dosage: DOSE:54 UNIT(S)
     Route: 058
     Dates: start: 20090101
  4. BYETTA [Suspect]
  5. BYETTA [Suspect]
  6. METFORMIN HCL [Concomitant]

REACTIONS (3)
  - BLOOD GLUCOSE DECREASED [None]
  - BLOOD GLUCOSE INCREASED [None]
  - WEIGHT DECREASED [None]
